FAERS Safety Report 17740855 (Version 1)
Quarter: 2020Q2

REPORT INFORMATION
  Report Type: Report from Study
  Country: ES (occurrence: ES)
  Receive Date: 20200504
  Receipt Date: 20200504
  Transmission Date: 20200714
  Serious: Yes (Hospitalization)
  Sender: FDA-Public Use
  Company Number: ES-TEVA-2020-ES-1229741

PATIENT
  Age: 82 Year
  Sex: Female

DRUGS (6)
  1. BISOPROLOL (2328A) [Interacting]
     Active Substance: BISOPROLOL
     Dosage: 10 MG
     Route: 048
     Dates: start: 201610
  2. UNIKET 20 MG COMPRIMIDOS, 40 COMPRIMIDOS [Concomitant]
     Dosage: 40 MG
     Route: 048
     Dates: start: 201105
  3. CITALOPRAM [Concomitant]
     Active Substance: CITALOPRAM HYDROBROMIDE
     Dosage: 20 MG
     Route: 048
     Dates: end: 20170514
  4. PRAVASTATINA SODICA (7192SO) [Concomitant]
     Active Substance: PRAVASTATIN SODIUM
     Indication: DYSLIPIDAEMIA
     Dosage: 20 MG
     Route: 048
  5. AMLODIPINO (2503A) [Suspect]
     Active Substance: AMLODIPINE BESYLATE
     Dosage: 5 MG
     Route: 048
     Dates: start: 201212
  6. TROMALYT [Concomitant]
     Active Substance: ASPIRIN
     Dosage: 150 MG
     Route: 048
     Dates: end: 20170514

REACTIONS (2)
  - Drug interaction [Unknown]
  - Nodal rhythm [Recovered/Resolved]

NARRATIVE: CASE EVENT DATE: 20170514
